FAERS Safety Report 12233868 (Version 1)
Quarter: 2016Q2

REPORT INFORMATION
  Report Type: Spontaneous
  Country: US (occurrence: None)
  Receive Date: 20160401
  Receipt Date: 20160401
  Transmission Date: 20160815
  Serious: No
  Sender: FDA-Public Use
  Company Number: None

PATIENT

DRUGS (1)
  1. ADIPEX-P [Suspect]
     Active Substance: PHENTERMINE HYDROCHLORIDE

REACTIONS (6)
  - Headache [None]
  - Nausea [None]
  - Dizziness [None]
  - Weight increased [None]
  - Flushing [None]
  - Hypertension [None]
